FAERS Safety Report 11181152 (Version 2)
Quarter: 2015Q2

REPORT INFORMATION
  Report Type: Spontaneous
  Country: DK (occurrence: DK)
  Receive Date: 20150611
  Receipt Date: 20150619
  Transmission Date: 20150821
  Serious: Yes (Hospitalization)
  Sender: FDA-Public Use
  Company Number: DK-HOSPIRA-2892798

PATIENT
  Age: 76 Year
  Sex: Female

DRUGS (3)
  1. AVASTIN [Suspect]
     Active Substance: BEVACIZUMAB
     Indication: COLON CANCER
     Dosage: DAILY; STRENGTH: 25 MG/ML
     Route: 042
     Dates: start: 20140512
  2. CAPECITABINE ACCORD [Suspect]
     Active Substance: CAPECITABINE
     Indication: COLON CANCER
     Dosage: DAILY
     Route: 048
     Dates: start: 20140512, end: 20140805
  3. OXALIPLATIN HOSPIRA [Suspect]
     Active Substance: OXALIPLATIN
     Indication: COLON CANCER
     Dosage: DAILY; STRENGTH: 5 MG/ML
     Route: 042
     Dates: start: 20140512

REACTIONS (11)
  - Colectomy [Not Recovered/Not Resolved]
  - Diarrhoea [Recovered/Resolved]
  - Cardiac arrest [Recovered/Resolved]
  - Abdominal pain [Unknown]
  - Small intestinal perforation [Recovered/Resolved with Sequelae]
  - Ileocolic bypass [Recovered/Resolved]
  - Abdominal adhesions [Unknown]
  - Electrocardiogram QT prolonged [Recovered/Resolved]
  - Ileostomy [Not Recovered/Not Resolved]
  - Peritonitis [Recovered/Resolved]
  - Vomiting [Recovered/Resolved]

NARRATIVE: CASE EVENT DATE: 20140515
